FAERS Safety Report 6809907-9 (Version None)
Quarter: 2010Q2

REPORT INFORMATION
  Report Type: 
  Country: None (occurrence: None)
  Receive Date: 20100630
  Receipt Date: 20100622
  Transmission Date: 20101027
  Serious: Yes (Hospitalization)
  Sender: FDA-Public Use
  Company Number: HU-ROCHE-684224

PATIENT
  Sex: Male
  Weight: 64 kg

DRUGS (14)
  1. BEVACIZUMAB [Suspect]
     Indication: NON-SMALL CELL LUNG CANCER
     Dosage: FORM: INFUSION. DATE OF LAST DOSE PRIOR TO SAE: 16 MAR 2010
     Route: 042
     Dates: start: 20091117
  2. GEMCITABINE HCL [Suspect]
     Indication: NON-SMALL CELL LUNG CANCER
     Dosage: FORM :INFUSION,ON DAY 1 AND 8 EVERY 3 WEEKS. LAST DOSE PRIOR TO SAE: 16 MARCH 2010
     Route: 042
     Dates: start: 20091117, end: 20100323
  3. GEMCITABINE HCL [Suspect]
     Dosage: RECEIVED DAILY ON DAY 1 AND 8 EVERY 3 WEEKS
     Route: 042
     Dates: start: 20100401
  4. CARBOPLATIN [Suspect]
     Indication: NON-SMALL CELL LUNG CANCER
     Dosage: FORM: INFUSION
     Route: 042
     Dates: start: 20091117
  5. TRAMADOL [Concomitant]
     Dosage: INDICATION: FRACTURA PERTROCHANTAICA
     Dates: start: 20091024, end: 20091119
  6. TRAMADOL [Concomitant]
     Dates: start: 20091030
  7. FRAGMIN [Concomitant]
     Indication: THROMBOSIS PROPHYLAXIS
     Dates: start: 20091024, end: 20091125
  8. KALIUM-R [Concomitant]
     Dates: start: 20091106
  9. BISOBLOCK [Concomitant]
     Indication: HYPERTENSION
     Dates: start: 20090820
  10. NEORECORMON [Concomitant]
     Indication: ANAEMIA
     Dates: start: 20100113
  11. FERRO-FOLGAMMA [Concomitant]
     Indication: ANAEMIA
     Dates: start: 20091221
  12. HYGROTON [Concomitant]
     Indication: HYPERTENSION
     Dates: start: 20090820, end: 20091118
  13. MEGALIA [Concomitant]
     Indication: CACHEXIA
     Dates: start: 20091102
  14. FURON [Concomitant]
     Indication: HYPERTENSION
     Dates: start: 20091106

REACTIONS (5)
  - ANAEMIA [None]
  - EPISTAXIS [None]
  - LEUKOPENIA [None]
  - NEUTROPENIA [None]
  - THROMBOCYTOPENIA [None]
